FAERS Safety Report 17068152 (Version 3)
Quarter: 2020Q2

REPORT INFORMATION
  Report Type: Report from Study
  Country: FR (occurrence: FR)
  Receive Date: 20191122
  Receipt Date: 20200402
  Transmission Date: 20200713
  Serious: Yes (Hospitalization, Other)
  Sender: FDA-Public Use
  Company Number: PHHO2019FR008527

PATIENT
  Age: 14 Year
  Sex: Female
  Weight: 43.6 kg

DRUGS (32)
  1. TOCILIZUMAB. [Concomitant]
     Active Substance: TOCILIZUMAB
     Indication: CYTOKINE RELEASE SYNDROME
     Dosage: UNK
     Route: 065
     Dates: start: 20190813, end: 20190813
  2. VERSATIS [Concomitant]
     Active Substance: LIDOCAINE
     Indication: PAIN
     Dosage: UNK
     Route: 065
     Dates: start: 20190730, end: 20190819
  3. OXYNORM [Concomitant]
     Active Substance: OXYCODONE HYDROCHLORIDE
     Dosage: UNK
     Route: 065
     Dates: start: 20190801, end: 20190808
  4. MORPHINE [Concomitant]
     Active Substance: MORPHINE
     Indication: PAIN
  5. ELUDRIL [Concomitant]
     Indication: PROPHYLAXIS
     Dosage: UNK
     Route: 065
     Dates: start: 20190806
  6. LAROXYL [Concomitant]
     Active Substance: AMITRIPTYLINE HYDROCHLORIDE
     Indication: PAIN
     Dosage: UNK
     Route: 065
     Dates: start: 20190721, end: 20190813
  7. CANCIDAS [Concomitant]
     Active Substance: CASPOFUNGIN ACETATE
     Indication: PNEUMONIA
     Dosage: UNK
     Route: 065
     Dates: start: 20190805, end: 20190815
  8. MEROPENEM. [Concomitant]
     Active Substance: MEROPENEM
     Indication: PNEUMONIA
     Dosage: UNK
     Route: 065
     Dates: start: 20190808, end: 20190816
  9. KALINOX [Concomitant]
     Active Substance: NITROUS OXIDE\OXYGEN
     Indication: PAIN
     Dosage: UNK
     Route: 065
     Dates: start: 20190710, end: 20191017
  10. ACUPAN [Concomitant]
     Active Substance: NEFOPAM HYDROCHLORIDE
     Indication: NEUROPATHY PERIPHERAL
  11. LASILIX [Concomitant]
     Active Substance: FUROSEMIDE
     Indication: OEDEMA PERIPHERAL
     Dosage: UNK
     Route: 065
     Dates: start: 20190817, end: 20190817
  12. ULCAR [SUCRALFATE] [Concomitant]
     Active Substance: SUCRALFATE
     Indication: PRODUCT USED FOR UNKNOWN INDICATION
     Dosage: UNK
     Route: 065
     Dates: start: 20190724, end: 20190807
  13. OLANZAPINE. [Concomitant]
     Active Substance: OLANZAPINE
     Indication: ANXIETY
     Dosage: UNK
     Route: 065
     Dates: start: 20190712, end: 20190908
  14. SODIUM BICARBONATE. [Concomitant]
     Active Substance: SODIUM BICARBONATE
     Indication: PROPHYLAXIS
  15. MEROPENEM. [Concomitant]
     Active Substance: MEROPENEM
     Dosage: UNK
     Route: 065
     Dates: start: 20190817, end: 20190910
  16. MORPHINE [Concomitant]
     Active Substance: MORPHINE
     Indication: NEUROPATHY PERIPHERAL
     Dosage: UNK
     Route: 065
     Dates: start: 20190808, end: 20190903
  17. TISAGENLECLEUCEL. [Suspect]
     Active Substance: TISAGENLECLEUCEL
     Indication: NON-HODGKIN^S LYMPHOMA
     Dosage: UNK
     Route: 042
     Dates: start: 20190808
  18. NEURONTIN [Concomitant]
     Active Substance: GABAPENTIN
     Indication: PAIN
     Dosage: UNK
     Route: 065
     Dates: start: 20190717, end: 20190724
  19. LOVENOX [Concomitant]
     Active Substance: ENOXAPARIN SODIUM
     Indication: OEDEMA PERIPHERAL
  20. SODIUM BICARBONATE. [Concomitant]
     Active Substance: SODIUM BICARBONATE
     Indication: STOMATITIS
     Dosage: UNK
     Route: 065
     Dates: start: 20190724, end: 20190806
  21. OXYNORM [Concomitant]
     Active Substance: OXYCODONE HYDROCHLORIDE
     Indication: PAIN
     Dosage: UNK
     Route: 065
     Dates: start: 20190708, end: 20190731
  22. KALINOX [Concomitant]
     Active Substance: NITROUS OXIDE\OXYGEN
     Indication: PERIPHERAL SENSORY NEUROPATHY
  23. ACUPAN [Concomitant]
     Active Substance: NEFOPAM HYDROCHLORIDE
     Indication: PAIN
     Dosage: UNK
     Route: 065
     Dates: start: 20190804, end: 20190813
  24. NEURONTIN [Concomitant]
     Active Substance: GABAPENTIN
     Indication: PERIPHERAL SENSORY NEUROPATHY
     Dosage: UNK
     Route: 065
     Dates: start: 20190725, end: 20190829
  25. XYLOCAINE [Concomitant]
     Active Substance: LIDOCAINE HYDROCHLORIDE
     Indication: STOMATITIS
     Dosage: UNK
     Route: 065
     Dates: start: 20190624, end: 20190729
  26. KETAMINE [Concomitant]
     Active Substance: KETAMINE
     Indication: PAIN
     Dosage: UNK
     Route: 065
     Dates: start: 20190726, end: 20190729
  27. LOVENOX [Concomitant]
     Active Substance: ENOXAPARIN SODIUM
     Indication: PROPHYLAXIS
     Dosage: UNK
     Route: 065
     Dates: start: 20190817
  28. MEROPENEM. [Concomitant]
     Active Substance: MEROPENEM
     Indication: INFECTION PROPHYLAXIS
     Dosage: UNK
     Route: 065
     Dates: start: 20190803, end: 20190807
  29. BACTRIM [Concomitant]
     Active Substance: SULFAMETHOXAZOLE\TRIMETHOPRIM
     Indication: PRODUCT USED FOR UNKNOWN INDICATION
     Dosage: UNK
     Route: 065
     Dates: start: 20190612
  30. KETAMINE [Concomitant]
     Active Substance: KETAMINE
     Dosage: UNK
     Route: 065
     Dates: start: 20190730, end: 20190827
  31. LAROXYL [Concomitant]
     Active Substance: AMITRIPTYLINE HYDROCHLORIDE
     Dosage: UNK
     Route: 065
     Dates: start: 20190816, end: 20190820
  32. PLITICAN [Concomitant]
     Active Substance: ALIZAPRIDE HYDROCHLORIDE
     Indication: PROPHYLAXIS OF NAUSEA AND VOMITING
     Dosage: UNK
     Route: 065
     Dates: start: 20190729, end: 20190731

REACTIONS (1)
  - Seizure [Recovered/Resolved]

NARRATIVE: CASE EVENT DATE: 20190813
